FAERS Safety Report 6165850-2 (Version None)
Quarter: 2009Q2

REPORT INFORMATION
  Report Type: 
  Country: None (occurrence: None)
  Receive Date: 20090422
  Receipt Date: 20090407
  Transmission Date: 20091009
  Serious: Yes (Congenital Anomaly, Other)
  Sender: FDA-Public Use
  Company Number: 2009S1006202

PATIENT
  Age: 12 Week
  Sex: Male

DRUGS (7)
  1. AMOXICILLIN [Suspect]
     Indication: DRUG USE FOR UNKNOWN INDICATION
     Dosage: 250 MG; 3 TIMES A DAY; TRANSPLACENTAL
     Route: 064
     Dates: start: 20080707
  2. CODEINE SUL TAB [Suspect]
     Indication: DRUG USE FOR UNKNOWN INDICATION
     Dosage: 30 MG; AS NEEDED; TRANSPLACENTAL
     Route: 064
  3. FERROUS SULFATE TAB [Suspect]
     Indication: DRUG USE FOR UNKNOWN INDICATION
     Dosage: 200 MG; TWICE A DAY; TRANSPLACENTAL
     Route: 064
     Dates: start: 20081006
  4. LITHIUM CARBONATE [Suspect]
     Indication: BIPOLAR DISORDER
     Dosage: 1200 MG; TRANSPLACENTAL
     Route: 064
     Dates: start: 20050101
  5. QUETIAPINE (QUETIAPINE) (100 MG) [Suspect]
     Indication: BIPOLAR DISORDER
     Dosage: 100 MG; TRANSPLACENTAL
     Route: 064
     Dates: start: 20080421, end: 20080616
  6. REBOXETINE (REBOXETINE)	(4 MG) [Suspect]
     Indication: BIPOLAR DISORDER
     Dosage: 4 MG; TRANSPLACENTAL
     Route: 064
     Dates: start: 20050101, end: 20080529
  7. VENLAFAXINE HCL [Suspect]
     Indication: BIPOLAR DISORDER
     Dosage: 150 MG; TRANSPLACENTAL
     Route: 064
     Dates: start: 20050624

REACTIONS (2)
  - MATERNAL DRUGS AFFECTING FOETUS [None]
  - PIERRE ROBIN SYNDROME [None]
